FAERS Safety Report 11826339 (Version 1)
Quarter: 2015Q4

REPORT INFORMATION
  Report Type: Spontaneous
  Country: US (occurrence: None)
  Receive Date: 20151210
  Receipt Date: 20151210
  Transmission Date: 20160305
  Serious: No
  Sender: FDA-Public Use
  Company Number: None

PATIENT
  Age: 47 Year
  Sex: Female
  Weight: 58.97 kg

DRUGS (6)
  1. AMPYRA [Concomitant]
     Active Substance: DALFAMPRIDINE
  2. COLGATE OPTIC WHITE PEN COGATE-PALMOLIVE COMPANY [Suspect]
     Active Substance: HYDROGEN PEROXIDE
     Indication: TOOTH DISCOLOURATION
     Dates: start: 20151208, end: 20151209
  3. NEW NORDIC HAIR VOLUME [Concomitant]
  4. COPAXONE [Concomitant]
     Active Substance: GLATIRAMER ACETATE
  5. VITAMIN D3 [Concomitant]
     Active Substance: CHOLECALCIFEROL
  6. VITAMIN E [Concomitant]
     Active Substance: .ALPHA.-TOCOPHEROL

REACTIONS (3)
  - Nausea [None]
  - Dizziness [None]
  - Malaise [None]

NARRATIVE: CASE EVENT DATE: 20151208
